FAERS Safety Report 14627547 (Version 1)
Quarter: 2018Q1

REPORT INFORMATION
  Report Type: Other
  Country: CZ (occurrence: CZ)
  Receive Date: 20180312
  Receipt Date: 20180312
  Transmission Date: 20180509
  Serious: Yes (Life-Threatening)
  Sender: FDA-Public Use
  Company Number: CZ-B. BRAUN MEDICAL INC.-2043535

PATIENT
  Age: 29 Year
  Sex: Male

DRUGS (2)
  1. SODIUM CHLORIDE INJECTION USP 0264-7800-09 [Suspect]
     Active Substance: SODIUM CHLORIDE
     Indication: BRONCHIAL HAEMORRHAGE
  2. NAPHAZOLINE [Suspect]
     Active Substance: NAPHAZOLINE\NAPHAZOLINE HYDROCHLORIDE

REACTIONS (2)
  - Arteriospasm coronary [None]
  - Product use issue [None]
